FAERS Safety Report 11157142 (Version 1)
Quarter: 2015Q2

REPORT INFORMATION
  Report Type: Spontaneous
  Country: US (occurrence: None)
  Receive Date: 20150601
  Receipt Date: 20150601
  Transmission Date: 20150821
  Serious: Yes (Disabling)
  Sender: FDA-Public Use
  Company Number: None

PATIENT
  Age: 59 Year
  Sex: Female
  Weight: 83.01 kg

DRUGS (12)
  1. DEPO-MEDROL [Suspect]
     Active Substance: METHYLPREDNISOLONE ACETATE
     Indication: SCIATICA
     Dosage: 1 INJECTION  1 INJECTION  INTO THE MUSCLE
     Route: 030
     Dates: start: 201410
  2. DEPO-MEDROL [Suspect]
     Active Substance: METHYLPREDNISOLONE ACETATE
     Indication: BACK PAIN
     Dosage: 1 INJECTION  1 INJECTION  INTO THE MUSCLE
     Route: 030
     Dates: start: 201410
  3. S-ADENOSYLMETHIONINE SULFATE P-TOLUENESULFONATE [Concomitant]
     Active Substance: ADEMETIONINE SULFATE TOSILATE
  4. TART CHERRY CAPSULES [Concomitant]
  5. ATTENOLOL [Concomitant]
  6. HYDROCODONE [Concomitant]
     Active Substance: HYDROCODONE
  7. LEVOTHYROIXIN [Concomitant]
  8. D3 [Concomitant]
     Active Substance: 25-HYDROXYCHOLECALCIFEROL, 5-TRANS-
  9. IBUPROFEN. [Concomitant]
     Active Substance: IBUPROFEN
  10. CALCIUM WITH MAGNESIUM + ZINC [Concomitant]
  11. BIOTIN [Concomitant]
     Active Substance: BIOTIN
  12. CENTRUM SILVER [Concomitant]
     Active Substance: VITAMINS

REACTIONS (1)
  - Upper respiratory tract infection [None]

NARRATIVE: CASE EVENT DATE: 20141103
